FAERS Safety Report 6679770-8 (Version None)
Quarter: 2010Q2

REPORT INFORMATION
  Report Type: 
  Country: None (occurrence: None)
  Receive Date: 20100413
  Receipt Date: 20090812
  Transmission Date: 20101027
  Serious: No
  Sender: FDA-Public Use
  Company Number: US-ASTRAZENECA-2009SE07843

PATIENT
  Age: 70 Year
  Sex: Female
  Weight: 86.2 kg

DRUGS (5)
  1. TENORMIN [Suspect]
     Indication: HYPERTENSION
     Route: 048
  2. VASOTEC [Concomitant]
  3. UROCIT-K [Concomitant]
  4. SUPPLEMENTS [Concomitant]
  5. CALCIUM [Concomitant]

REACTIONS (5)
  - FATIGUE [None]
  - HYPERCALCAEMIA [None]
  - HYPERPARATHYROIDISM [None]
  - NEPHROLITHIASIS [None]
  - PARATHYROIDECTOMY [None]
